FAERS Safety Report 6758753-3 (Version None)
Quarter: 2010Q2

REPORT INFORMATION
  Report Type: 
  Country: None (occurrence: None)
  Receive Date: 20100528
  Receipt Date: 20070521
  Transmission Date: 20101027
  Serious: Yes (Death, Other)
  Sender: FDA-Public Use
  Company Number: 2007SP009902

PATIENT
  Age: 47 Year
  Sex: Female
  Weight: 48 kg

DRUGS (15)
  1. TEMODAL [Suspect]
     Indication: GLIOBLASTOMA MULTIFORME
     Dosage: SEE IMAGE
     Dates: start: 20061026, end: 20061030
  2. TEMODAL [Suspect]
     Indication: GLIOBLASTOMA MULTIFORME
     Dosage: SEE IMAGE
     Dates: start: 20061123, end: 20061127
  3. TEMODAL [Suspect]
     Indication: GLIOBLASTOMA MULTIFORME
     Dosage: SEE IMAGE
     Dates: start: 20061226, end: 20061230
  4. TEMODAL [Suspect]
     Indication: GLIOBLASTOMA MULTIFORME
     Dosage: SEE IMAGE
     Dates: start: 20070123, end: 20070127
  5. TEMODAL [Suspect]
     Indication: GLIOBLASTOMA MULTIFORME
     Dosage: SEE IMAGE
     Dates: start: 20070226, end: 20070302
  6. TEMODAL [Suspect]
     Indication: GLIOBLASTOMA MULTIFORME
     Dosage: SEE IMAGE
     Dates: start: 20070326, end: 20070330
  7. NIDRAN (PREV.) [Concomitant]
  8. ONCOVIN (PREV.) [Concomitant]
  9. NATULAN (PREV.) [Concomitant]
  10. BAKTAR (CON.) [Concomitant]
  11. HERBESSER R (CON.) [Concomitant]
  12. FRANDOL S (CON.) [Concomitant]
  13. SIGMART (CON.) [Concomitant]
  14. METHYCOBAL (CON.) [Concomitant]
  15. G-CSF (CON.) [Concomitant]

REACTIONS (4)
  - DISEASE PROGRESSION [None]
  - GLIOBLASTOMA MULTIFORME [None]
  - IIIRD NERVE PARALYSIS [None]
  - NEUTROPHIL COUNT DECREASED [None]
